FAERS Safety Report 4391478-0 (Version None)
Quarter: 2004Q3

REPORT INFORMATION
  Report Type: 
  Country: None (occurrence: None)
  Receive Date: 20040707
  Receipt Date: 20040701
  Transmission Date: 20050211
  Serious: Yes (Disabling)
  Sender: FDA-Public Use
  Company Number: DE-GLAXOSMITHKLINE-D0044087A

PATIENT
  Age: 48 Year
  Sex: Female
  Weight: 55.2 kg

DRUGS (3)
  1. LAMICTAL [Suspect]
     Route: 048
     Dates: start: 20031204, end: 20040120
  2. ZYPREXA [Concomitant]
     Indication: BIPOLAR DISORDER
     Dosage: 15MG PER DAY
     Route: 048
  3. TREVILOR [Concomitant]
     Indication: BIPOLAR DISORDER
     Dosage: 150MG PER DAY
     Route: 048

REACTIONS (4)
  - DERMATITIS [None]
  - ERYTHEMA [None]
  - RASH MACULO-PAPULAR [None]
  - SKIN NECROSIS [None]
